FAERS Safety Report 9581412 (Version 2)
Quarter: 2016Q3

REPORT INFORMATION
  Report Type: Spontaneous
  Country: CA (occurrence: CA)
  Receive Date: 20131002
  Receipt Date: 20160713
  Transmission Date: 20161109
  Serious: Yes (Other)
  Sender: FDA-Public Use
  Company Number: CA-009507513-1310CAN001215

PATIENT
  Age: 51 Year
  Sex: Female

DRUGS (1)
  1. REMERON [Suspect]
     Active Substance: MIRTAZAPINE
     Indication: ANXIETY
     Dosage: UNK
     Route: 065
     Dates: start: 200112, end: 200206

REACTIONS (3)
  - Aplastic anaemia [Recovered/Resolved]
  - Loss of consciousness [Unknown]
  - Fatigue [Unknown]

NARRATIVE: CASE EVENT DATE: 200112
